FAERS Safety Report 23687242 (Version 1)
Quarter: 2024Q1

REPORT INFORMATION
  Report Type: Spontaneous
  Country: CA (occurrence: CA)
  Receive Date: 20240329
  Receipt Date: 20240329
  Transmission Date: 20240410
  Serious: Yes (Other)
  Sender: FDA-Public Use
  Company Number: CA-Ascend Therapeutics US, LLC-2154998

PATIENT
  Sex: Female

DRUGS (7)
  1. ESTROGEL [Suspect]
     Active Substance: ESTRADIOL
     Indication: Product used for unknown indication
     Route: 065
     Dates: start: 2017
  2. ESTROGEL [Suspect]
     Active Substance: ESTRADIOL
     Route: 065
     Dates: start: 2017
  3. ESTROGEL [Suspect]
     Active Substance: ESTRADIOL
     Route: 065
  4. ESTROGEL [Suspect]
     Active Substance: ESTRADIOL
     Route: 065
  5. ESTROGEL [Suspect]
     Active Substance: ESTRADIOL
     Route: 065
  6. ESTROGEL [Suspect]
     Active Substance: ESTRADIOL
     Route: 065
     Dates: start: 2022
  7. ESTROGEL [Suspect]
     Active Substance: ESTRADIOL
     Route: 065
     Dates: start: 2018

REACTIONS (4)
  - Uterine haemorrhage [Recovering/Resolving]
  - Depression [Recovering/Resolving]
  - Endometrial thickening [Recovering/Resolving]
  - Blood oestrogen increased [Recovering/Resolving]
